FAERS Safety Report 9421409 (Version 2)
Quarter: 2013Q3

REPORT INFORMATION
  Report Type: Spontaneous
  Country: US (occurrence: US)
  Receive Date: 20130725
  Receipt Date: 20130816
  Transmission Date: 20140515
  Serious: No
  Sender: FDA-Public Use
  Company Number: US-009507513-1307USA009830

PATIENT
  Age: 78 Year
  Sex: Female

DRUGS (13)
  1. JANUVIA [Suspect]
     Indication: TYPE 2 DIABETES MELLITUS
     Dosage: UNK, QD
     Route: 048
     Dates: start: 201003
  2. CARVEDILOL [Concomitant]
  3. POTASSIUM CITRATE [Concomitant]
  4. ASPIRIN [Concomitant]
  5. MOBIC [Concomitant]
  6. LEVODOPA [Concomitant]
  7. EVISTA [Concomitant]
  8. GLIPIZIDE [Concomitant]
  9. VITAMIN D (UNSPECIFIED) [Concomitant]
  10. PRINIVIL [Concomitant]
  11. PREVALITE [Concomitant]
  12. PRAVASTATIN SODIUM [Concomitant]
  13. CLOPIDOGREL BISULFATE [Concomitant]

REACTIONS (3)
  - Glycosylated haemoglobin increased [Unknown]
  - Medication residue present [Unknown]
  - Abdominal pain upper [Unknown]
